FAERS Safety Report 10186353 (Version 1)
Quarter: 2014Q2

REPORT INFORMATION
  Report Type: Spontaneous
  Country: US (occurrence: US)
  Receive Date: 20140521
  Receipt Date: 20140521
  Transmission Date: 20141212
  Serious: No
  Sender: FDA-Public Use
  Company Number: US-ASTRAZENECA-2014SE15536

PATIENT
  Age: 60 Year
  Sex: Male

DRUGS (2)
  1. PULMICORT FLEXHALER [Suspect]
     Route: 055
  2. SYMBICORT [Suspect]
     Route: 055

REACTIONS (2)
  - Eye disorder [Unknown]
  - Vision blurred [Unknown]
